FAERS Safety Report 4546095-6 (Version None)
Quarter: 2005Q1

REPORT INFORMATION
  Report Type: 
  Country: None (occurrence: None)
  Receive Date: 20050103
  Receipt Date: 20041221
  Transmission Date: 20050727
  Serious: Yes (Hospitalization)
  Sender: FDA-Public Use
  Company Number: 200416164BCC

PATIENT
  Sex: Female
  Weight: 48.5349 kg

DRUGS (10)
  1. ALEVE [Suspect]
     Indication: ARTHRALGIA
     Dosage: 220 MG, BID, ORAL
     Route: 048
  2. DIGOXIN [Concomitant]
  3. LIPITOR [Concomitant]
  4. ENALAPRIL [Concomitant]
  5. SAINT JOSEPH ASPIRIN [Concomitant]
  6. FUROSEMIDE [Concomitant]
  7. FERROUS SULFATE TAB [Concomitant]
  8. IRON (INJECTION) [Concomitant]
  9. TYLENOL [Concomitant]
  10. ECOTRIN [Concomitant]

REACTIONS (1)
  - VASCULAR BYPASS GRAFT [None]
